FAERS Safety Report 7231993-5 (Version None)
Quarter: 2011Q1

REPORT INFORMATION
  Report Type: 
  Country: None (occurrence: None)
  Receive Date: 20110118
  Receipt Date: 20110110
  Transmission Date: 20110831
  Serious: Yes (Hospitalization, Other)
  Sender: FDA-Public Use
  Company Number: ES-GENENTECH-287042

PATIENT
  Sex: Female
  Weight: 50 kg

DRUGS (27)
  1. PREDNISONE [Suspect]
     Dosage: UNK
     Route: 042
     Dates: start: 20090918, end: 20091030
  2. LIDOCAINE HYDROCHLORIDE IN PLASTIC CONTAINER [Concomitant]
     Indication: PRODUCT USED FOR UNKNOWN INDICATION
     Dosage: UNK
     Dates: start: 20090627
  3. ENOXAPARIN SODIUM [Concomitant]
     Indication: PRODUCT USED FOR UNKNOWN INDICATION
     Dosage: UNK
     Dates: start: 20090828
  4. BLINDED BEVACIZUMAB [Suspect]
     Indication: DIFFUSE LARGE B-CELL LYMPHOMA
     Dosage: UNK
     Route: 042
     Dates: start: 20090508, end: 20090911
  5. BLINDED RITUXIMAB [Suspect]
     Dosage: UNK
     Route: 042
     Dates: start: 20090918, end: 20091030
  6. VINCRISTINE [Suspect]
     Indication: DIFFUSE LARGE B-CELL LYMPHOMA
     Dosage: 2 MG, Q2W
     Route: 042
     Dates: start: 20090509
  7. PREDNISOLONE [Suspect]
     Indication: DIFFUSE LARGE B-CELL LYMPHOMA
     Dosage: 100 MG, Q2W
     Route: 048
     Dates: start: 20090509
  8. BLINDED PLACEBO [Suspect]
     Indication: DIFFUSE LARGE B-CELL LYMPHOMA
     Dosage: UNK
     Route: 042
     Dates: start: 20090508, end: 20090911
  9. BLINDED PLACEBO [Suspect]
     Dosage: UNK
     Route: 042
     Dates: start: 20090918, end: 20091030
  10. CYCLOPHOSPHAMIDE [Suspect]
     Indication: DIFFUSE LARGE B-CELL LYMPHOMA
     Dosage: 1148 MG, Q2W
     Route: 042
     Dates: start: 20090509
  11. SEPTRIN FORTE [Concomitant]
     Indication: PRODUCT USED FOR UNKNOWN INDICATION
     Dosage: UNK
     Dates: start: 20090507
  12. BLINDED DOXORUBICIN [Suspect]
     Indication: DIFFUSE LARGE B-CELL LYMPHOMA
     Dosage: UNK
     Route: 042
     Dates: start: 20090508, end: 20090911
  13. RITUXAN [Suspect]
     Dosage: 562 MG, Q2W
     Route: 042
     Dates: start: 20090918, end: 20091030
  14. CYCLOPHOSPHAMIDE [Suspect]
     Indication: DIFFUSE LARGE B-CELL LYMPHOMA
     Dosage: UNK
     Route: 042
     Dates: start: 20090508, end: 20090911
  15. OMEPRAZOLE [Concomitant]
     Indication: PRODUCT USED FOR UNKNOWN INDICATION
     Dosage: UNK
     Dates: start: 20090505
  16. PREDNISONE [Suspect]
     Indication: DIFFUSE LARGE B-CELL LYMPHOMA
     Dosage: UNK
     Route: 042
     Dates: start: 20090508, end: 20090911
  17. BLINDED RITUXIMAB [Suspect]
     Indication: DIFFUSE LARGE B-CELL LYMPHOMA
     Dosage: UNK
     Route: 042
     Dates: start: 20090508, end: 20090911
  18. BLINDED BEVACIZUMAB [Suspect]
     Dosage: UNK
     Route: 042
     Dates: start: 20090918, end: 20091030
  19. BLINDED DOXORUBICIN [Suspect]
     Dosage: UNK
     Route: 042
     Dates: start: 20090918, end: 20091030
  20. ENOXAPARIN SODIUM [Concomitant]
     Indication: PRODUCT USED FOR UNKNOWN INDICATION
     Dosage: 60 MG, UNK
     Dates: start: 20090507
  21. VINCRISTINE [Suspect]
     Indication: DIFFUSE LARGE B-CELL LYMPHOMA
     Dosage: UNK
     Route: 042
     Dates: start: 20090508, end: 20090911
  22. DOXORUBICIN HCL [Suspect]
     Indication: DIFFUSE LARGE B-CELL LYMPHOMA
     Dosage: 76.5 MG, Q2W
     Route: 042
     Dates: start: 20090509
  23. CYCLOPHOSPHAMIDE [Suspect]
     Dosage: UNK
     Route: 042
     Dates: start: 20090918, end: 20091030
  24. VINCRISTINE [Suspect]
     Dosage: UNK
     Route: 042
     Dates: start: 20090918, end: 20091030
  25. RITUXAN [Suspect]
     Indication: DIFFUSE LARGE B-CELL LYMPHOMA
     Dosage: 562 MG, Q2W
     Route: 042
     Dates: start: 20090509, end: 20090911
  26. NYSTATIN [Concomitant]
     Indication: PRODUCT USED FOR UNKNOWN INDICATION
     Dosage: UNK
     Dates: start: 20090626
  27. ACYCLOVIR [Concomitant]
     Indication: PRODUCT USED FOR UNKNOWN INDICATION
     Dosage: UNK
     Dates: start: 20090626

REACTIONS (4)
  - NEUTROPENIA [None]
  - FEBRILE NEUTROPENIA [None]
  - LYMPHOPENIA [None]
  - EJECTION FRACTION DECREASED [None]
